FAERS Safety Report 9245546 (Version 3)
Quarter: 2013Q2

REPORT INFORMATION
  Report Type: Spontaneous
  Country: US (occurrence: US)
  Receive Date: 20130422
  Receipt Date: 20130508
  Transmission Date: 20140414
  Serious: Yes (Other)
  Sender: FDA-Public Use
  Company Number: US-ASTRAZENECA-2013SE25557

PATIENT
  Age: 316 Day
  Sex: Male

DRUGS (14)
  1. SYNAGIS [Suspect]
     Route: 030
     Dates: start: 20130214
  2. SYNAGIS [Suspect]
     Route: 030
     Dates: start: 20130314
  3. SYNAGIS [Suspect]
     Route: 030
     Dates: start: 20130411
  4. BUDESONIDE [Concomitant]
  5. PULMOZYME [Concomitant]
  6. XOPENEX [Concomitant]
  7. SODIUM CHLORIDE [Concomitant]
  8. BETHANECHOL [Concomitant]
  9. LANSOPRAZOLE [Concomitant]
  10. SIMETHICONE [Concomitant]
  11. KENALOG [Concomitant]
  12. ZINC OXIDE [Concomitant]
  13. NYSTATIN [Concomitant]
  14. PATANASE [Concomitant]

REACTIONS (8)
  - Hypotonia [Recovered/Resolved]
  - Breath holding [Recovered/Resolved]
  - Cyanosis [Recovered/Resolved]
  - Fall [Recovered/Resolved]
  - Irritability [Recovered/Resolved]
  - Malaise [Recovered/Resolved]
  - Hypoxia [Recovered/Resolved]
  - Increased bronchial secretion [Recovered/Resolved]
